FAERS Safety Report 9688056 (Version 1)
Quarter: 2013Q4

REPORT INFORMATION
  Report Type: Spontaneous
  Country: US (occurrence: US)
  Receive Date: 20131114
  Receipt Date: 20131114
  Transmission Date: 20140711
  Serious: No
  Sender: FDA-Public Use
  Company Number: US-009507513-1311USA003461

PATIENT
  Sex: Female

DRUGS (2)
  1. DULERA [Suspect]
     Indication: RESPIRATORY DISORDER
     Dosage: 2 PUFFS, BID
     Route: 055
     Dates: start: 201310
  2. PAXIL [Concomitant]
     Dosage: UNK

REACTIONS (2)
  - Gastrooesophageal reflux disease [Not Recovered/Not Resolved]
  - Productive cough [Not Recovered/Not Resolved]
